FAERS Safety Report 21196985 (Version 1)
Quarter: 2022Q3

REPORT INFORMATION
  Report Type: Spontaneous
  Country: US (occurrence: US)
  Receive Date: 20220810
  Receipt Date: 20220810
  Transmission Date: 20221027
  Serious: Yes (Hospitalization)
  Sender: FDA-Public Use
  Company Number: US-PFIZER INC-202201048247

PATIENT
  Age: 77 Year
  Sex: Female
  Weight: 66.68 kg

DRUGS (1)
  1. NORVASC [Suspect]
     Active Substance: AMLODIPINE BESYLATE
     Indication: Hypertension
     Dosage: 5 MG, 2X/DAY (IN THE MORNING AND ONE IN THE EVENING BY MOUTH)
     Route: 048

REACTIONS (3)
  - Blood pressure fluctuation [Recovering/Resolving]
  - Product dose omission issue [Unknown]
  - Body height decreased [Unknown]

NARRATIVE: CASE EVENT DATE: 20210901
